FAERS Safety Report 10221772 (Version 1)
Quarter: 2014Q2

REPORT INFORMATION
  Report Type: Spontaneous
  Country: US (occurrence: None)
  Receive Date: 20140606
  Receipt Date: 20140606
  Transmission Date: 20141212
  Serious: No
  Sender: FDA-Public Use
  Company Number: None

PATIENT
  Age: 52 Year
  Sex: Female
  Weight: 68.04 kg

DRUGS (1)
  1. VIVELLE DOT [Suspect]
     Indication: MENOPAUSAL SYMPTOMS
     Dosage: APPLIED TO A SURFACE, USUALLY THE SKIN
     Route: 061
     Dates: start: 20140507, end: 20140605

REACTIONS (2)
  - Disease recurrence [None]
  - Product quality issue [None]
